FAERS Safety Report 9507789 (Version 1)
Quarter: 2013Q1

REPORT INFORMATION
  Report Type: Spontaneous
  Country: US (occurrence: None)
  Receive Date: 20130305
  Receipt Date: 20130305
  Transmission Date: 20140127
  Serious: Yes (Other)
  Sender: FDA-Public Use
  Company Number: 163-21880-11090750

PATIENT
  Age: 75 Year
  Sex: Female
  Weight: 52.21 kg

DRUGS (2)
  1. REVLIMID [Suspect]
     Indication: PLASMA CELL MYELOMA
     Dosage: 10 MG, 1 1IN 1 D, PO
     Route: 048
     Dates: start: 20110607
  2. LOVASTATIN (LOVASTATIN) (UNKNOWN) [Concomitant]

REACTIONS (10)
  - Platelet count decreased [None]
  - Anaemia [None]
  - White blood cell count decreased [None]
  - Insomnia [None]
  - Neutropenia [None]
  - Contusion [None]
  - Diarrhoea [None]
  - Muscular weakness [None]
  - Respiratory tract infection [None]
  - Oedema peripheral [None]
